FAERS Safety Report 12711427 (Version 1)
Quarter: 2016Q3

REPORT INFORMATION
  Report Type: Spontaneous
  Country: US (occurrence: US)
  Receive Date: 20160902
  Receipt Date: 20160902
  Transmission Date: 20161109
  Serious: Yes (Hospitalization, Other)
  Sender: FDA-Public Use
  Company Number: US-PFIZER INC-2016409877

PATIENT
  Age: 54 Year
  Sex: Female

DRUGS (33)
  1. VALIUM [Concomitant]
     Active Substance: DIAZEPAM
     Dosage: UNK
  2. MILK OF MAGNESIA [Concomitant]
     Active Substance: MAGNESIUM HYDROXIDE
     Dosage: UNK
  3. CEPACOL LOZENGE [Concomitant]
     Dosage: UNK
  4. POTIGA [Suspect]
     Active Substance: EZOGABINE
     Indication: SEIZURE
     Dosage: 250 MG, 3X/DAY
     Dates: start: 20130708
  5. ZANAFLEX [Concomitant]
     Active Substance: TIZANIDINE HYDROCHLORIDE
     Dosage: UNK
  6. HYDROCODONE [Concomitant]
     Active Substance: HYDROCODONE
     Dosage: UNK
  7. PEPCID [Concomitant]
     Active Substance: FAMOTIDINE
     Dosage: UNK
  8. ALUMINIUM HYDROXIDE, MAGNESIUM HYDROXIDE, SIMETICONE [Concomitant]
  9. PHENERGAN [Concomitant]
     Active Substance: PROMETHAZINE HYDROCHLORIDE
     Dosage: UNK
  10. MORPHINE SULFATE. [Suspect]
     Active Substance: MORPHINE SULFATE
     Dosage: UNK
  11. POTIGA [Suspect]
     Active Substance: EZOGABINE
     Dosage: 250 MG, 3X/DAY
     Dates: start: 20140121
  12. TORADOL [Suspect]
     Active Substance: KETOROLAC TROMETHAMINE
     Dosage: UNK
  13. TOPAMAX [Suspect]
     Active Substance: TOPIRAMATE
     Dosage: UNK
  14. NORCO [Concomitant]
     Active Substance: ACETAMINOPHEN\HYDROCODONE BITARTRATE
     Dosage: UNK
  15. ZOFRAN [Concomitant]
     Active Substance: ONDANSETRON HYDROCHLORIDE
     Dosage: UNK
  16. CLARITIN [Concomitant]
     Active Substance: LORATADINE
     Dosage: UNK
  17. LORTAB [Concomitant]
     Active Substance: ACETAMINOPHEN\HYDROCODONE BITARTRATE
     Dosage: UNK
  18. MIRALAX [Concomitant]
     Active Substance: POLYETHYLENE GLYCOL 3350
     Dosage: UNK
  19. TRAMADOL. [Suspect]
     Active Substance: TRAMADOL
     Dosage: UNK
  20. STADOL [Concomitant]
     Active Substance: BUTORPHANOL TARTRATE
     Dosage: UNK
  21. CLEOCIN [Concomitant]
     Active Substance: CLINDAMYCIN PHOSPHATE
     Dosage: UNK
  22. CATAPRES [Concomitant]
     Active Substance: CLONIDINE HYDROCHLORIDE
     Dosage: UNK
  23. VITAMIN B2 [Concomitant]
     Active Substance: RIBOFLAVIN
     Dosage: UNK
  24. LIDODERM [Concomitant]
     Active Substance: LIDOCAINE
     Dosage: UNK
  25. LIDOCAINE HCL [Suspect]
     Active Substance: LIDOCAINE HYDROCHLORIDE
     Dosage: UNK
  26. METHOCARBAMOL. [Concomitant]
     Active Substance: METHOCARBAMOL
     Dosage: UNK
  27. COLACE [Concomitant]
     Active Substance: DOCUSATE SODIUM
     Dosage: UNK
  28. NEURONTIN [Suspect]
     Active Substance: GABAPENTIN
     Dosage: UNK
  29. CECLOR [Suspect]
     Active Substance: CEFACLOR
     Indication: PRODUCT USED FOR UNKNOWN INDICATION
     Dosage: UNK
  30. DURICEF [Suspect]
     Active Substance: CEFADROXIL
     Dosage: UNK
  31. ELAVIL [Concomitant]
     Active Substance: AMITRIPTYLINE HYDROCHLORIDE
     Dosage: UNK
  32. LASIX [Concomitant]
     Active Substance: FUROSEMIDE
     Dosage: UNK
  33. FLEXERIL [Concomitant]
     Active Substance: CYCLOBENZAPRINE HYDROCHLORIDE
     Dosage: UNK

REACTIONS (26)
  - Pain in extremity [Not Recovered/Not Resolved]
  - Intervertebral disc protrusion [Unknown]
  - Tenderness [Unknown]
  - Nerve compression [Unknown]
  - Injury [Unknown]
  - Endocrine disorder [Unknown]
  - Reflex test abnormal [Unknown]
  - Procedural nausea [Unknown]
  - Muscle spasms [Unknown]
  - Burning sensation [Unknown]
  - Arthrodesis [Unknown]
  - Discomfort [Unknown]
  - Sensory loss [Unknown]
  - Spinal decompression [Unknown]
  - Back pain [Not Recovered/Not Resolved]
  - Visual acuity reduced [Unknown]
  - Neck pain [Not Recovered/Not Resolved]
  - Grip strength decreased [Unknown]
  - Spinal pain [Unknown]
  - Muscular weakness [Unknown]
  - Nervous system disorder [Unknown]
  - Procedural vomiting [Unknown]
  - Pseudarthrosis [Unknown]
  - Immune system disorder [Unknown]
  - Nerve block [Unknown]
  - Hypoaesthesia [Unknown]
